FAERS Safety Report 15150252 (Version 1)
Quarter: 2018Q3

REPORT INFORMATION
  Report Type: Spontaneous
  Country: DE (occurrence: DE)
  Receive Date: 20180716
  Receipt Date: 20180716
  Transmission Date: 20181010
  Serious: Yes (Other)
  Sender: FDA-Public Use
  Company Number: DE-US WORLDMEDS, LLC-STA_00016485

PATIENT
  Age: 54 Year
  Sex: Male
  Weight: 85 kg

DRUGS (7)
  1. DOPADURA 100/25 MG [Concomitant]
     Indication: PRODUCT USED FOR UNKNOWN INDICATION
  2. APOMORPHINE HYDROCHLORIDE [Suspect]
     Active Substance: APOMORPHINE HYDROCHLORIDE
     Indication: PARKINSON^S DISEASE
     Route: 058
     Dates: start: 201304
  3. TASMAR [Concomitant]
     Active Substance: TOLCAPONE
     Indication: PRODUCT USED FOR UNKNOWN INDICATION
  4. DOPADURA 100/25 RET [Concomitant]
     Indication: PRODUCT USED FOR UNKNOWN INDICATION
  5. SIFROL 0,35MG [Concomitant]
     Indication: PRODUCT USED FOR UNKNOWN INDICATION
  6. EXELON 9,5MG [Concomitant]
     Indication: PRODUCT USED FOR UNKNOWN INDICATION
     Route: 062
  7. RISPERIDON 1MG [Concomitant]
     Indication: PRODUCT USED FOR UNKNOWN INDICATION

REACTIONS (3)
  - Application site necrosis [Recovered/Resolved]
  - Application site erythema [Recovered/Resolved]
  - Application site nodule [Not Recovered/Not Resolved]

NARRATIVE: CASE EVENT DATE: 20130422
